FAERS Safety Report 8531703-5 (Version None)
Quarter: 2012Q3

REPORT INFORMATION
  Report Type: 
  Country: None (occurrence: None)
  Receive Date: 20120723
  Receipt Date: 20120719
  Transmission Date: 20120928
  Serious: Yes (Life-Threatening, Hospitalization, Disabling, Other)
  Sender: FDA-Public Use
  Company Number: GB-B.I. PHARMACEUTICALS,INC./RIDGEFIELD-2012-UK-00957UK

PATIENT
  Age: 57 Year
  Sex: Male

DRUGS (17)
  1. CLOZARIL [Suspect]
     Indication: PSYCHOTIC DISORDER
     Dosage: 550 MG
     Route: 048
     Dates: start: 20100301
  2. SODIUM DECANOATE [Suspect]
     Dosage: 200 MG
     Route: 048
  3. ASPIRIN [Concomitant]
     Dosage: 50 MG
     Route: 048
  4. HYOSCINE HBR HYT [Concomitant]
     Indication: SALIVARY HYPERSECRETION
     Dosage: 600 MCG
     Route: 048
  5. LACTULOSE [Concomitant]
  6. METFORMIN HYDROCHLORIDE [Concomitant]
     Dosage: 1000 MG
     Route: 048
  7. VENLAFAXINE [Concomitant]
     Indication: DEPRESSION
     Dosage: 30 MG
     Route: 048
  8. PERSANTINE [Suspect]
     Dosage: 400 MG
     Route: 048
  9. METOCLOPRAMIDE [Concomitant]
     Dosage: 20 MG
     Route: 048
  10. ASPIRIN [Concomitant]
     Route: 048
  11. ATORVASTATIN [Concomitant]
     Indication: BLOOD CHOLESTEROL INCREASED
     Dosage: 80 MG
     Route: 048
  12. CLOZARIL [Suspect]
     Indication: SCHIZOAFFECTIVE DISORDER
     Route: 048
     Dates: start: 20051102
  13. ALBUTEROL SULATE [Concomitant]
  14. FLUTICASONE PROPIONATE/SALMETEROL [Concomitant]
  15. OMEPRAZOLE [Concomitant]
     Indication: GASTROOESOPHAGEAL REFLUX DISEASE
     Dosage: 20 MG
     Route: 048
  16. PIZOTIFEN [Concomitant]
     Indication: MIGRAINE
     Dosage: 1.5 MG
  17. SENNA-MINT WAF [Concomitant]

REACTIONS (2)
  - LOWER RESPIRATORY TRACT INFECTION [None]
  - PNEUMONIA [None]
